FAERS Safety Report 10052293 (Version 1)
Quarter: 2014Q2

REPORT INFORMATION
  Report Type: Spontaneous
  Country: US (occurrence: None)
  Receive Date: 20140401
  Receipt Date: 20140401
  Transmission Date: 20141212
  Serious: Yes (Life-Threatening)
  Sender: FDA-Public Use
  Company Number: None

PATIENT
  Age: 61 Year
  Sex: Male

DRUGS (5)
  1. SUTENT [Suspect]
     Indication: RENAL CANCER
     Route: 048
     Dates: start: 20140318, end: 20140328
  2. SUTENT [Suspect]
     Route: 048
  3. METOPROLOL [Concomitant]
  4. LEVOTHYROXINE [Concomitant]
  5. ONDANSETRON [Concomitant]

REACTIONS (2)
  - Disease progression [None]
  - Hospice care [None]
